FAERS Safety Report 5260734-6 (Version None)
Quarter: 2007Q1

REPORT INFORMATION
  Report Type: 
  Country: None (occurrence: None)
  Receive Date: 20070309
  Receipt Date: 20070227
  Transmission Date: 20070707
  Serious: Yes (Hospitalization)
  Sender: FDA-Public Use
  Company Number: DE-AMGEN-UK213185

PATIENT
  Sex: Female

DRUGS (4)
  1. NEULASTA [Suspect]
     Indication: CHEMOTHERAPY
     Route: 065
     Dates: start: 20070214, end: 20070214
  2. DOCETAXEL [Concomitant]
     Route: 042
     Dates: start: 20070213, end: 20070213
  3. DOXORUBICIN HYDROCHLORIDE [Concomitant]
     Route: 042
     Dates: start: 20070213, end: 20070213
  4. CYCLOPHOSPHAMIDE [Concomitant]
     Route: 042
     Dates: start: 20070213, end: 20070213

REACTIONS (5)
  - ERYSIPELAS [None]
  - ERYTHEMA [None]
  - SCLERODERMA [None]
  - SUPERINFECTION [None]
  - SWELLING [None]
